FAERS Safety Report 5110159-9 (Version None)
Quarter: 2006Q3

REPORT INFORMATION
  Report Type: 
  Country: None (occurrence: None)
  Receive Date: 20060921
  Receipt Date: 20060801
  Transmission Date: 20061208
  Serious: Yes (Other)
  Sender: FDA-Public Use
  Company Number: PHBS2006JP11616

PATIENT
  Age: 62 Year
  Sex: Female

DRUGS (6)
  1. AREDIA [Suspect]
     Indication: METASTASES TO BONE
     Dosage: 45 MG
     Route: 042
     Dates: start: 20030701, end: 20030801
  2. AREDIA [Suspect]
     Dosage: 45 MG
     Route: 042
     Dates: start: 20040501, end: 20060601
  3. HERCEPTIN [Concomitant]
     Dosage: 150 MG/D
     Route: 042
     Dates: start: 20040101
  4. NAVELBINE [Concomitant]
     Indication: BREAST CANCER RECURRENT
     Dosage: 20 MG/DAY
     Route: 042
     Dates: start: 20060401
  5. PACLITAXEL [Concomitant]
     Indication: BREAST CANCER RECURRENT
     Route: 042
     Dates: start: 20040501, end: 20060301
  6. XELODA [Concomitant]
     Indication: BREAST CANCER RECURRENT
     Dosage: 1800 MG/D
     Route: 048
     Dates: start: 20060105, end: 20060301

REACTIONS (12)
  - ANAEMIA [None]
  - BREAST CANCER [None]
  - CONDITION AGGRAVATED [None]
  - GINGIVAL INFECTION [None]
  - HAEMATOCRIT DECREASED [None]
  - HAEMOGLOBIN DECREASED [None]
  - JAW DISORDER [None]
  - NEUTROPHIL COUNT DECREASED [None]
  - OSTEONECROSIS [None]
  - PRIMARY SEQUESTRUM [None]
  - RED BLOOD CELL COUNT DECREASED [None]
  - TOOTH EXTRACTION [None]
